FAERS Safety Report 13210963 (Version 1)
Quarter: 2017Q1

REPORT INFORMATION
  Report Type: Spontaneous
  Country: US (occurrence: US)
  Receive Date: 20170210
  Receipt Date: 20170210
  Transmission Date: 20170428
  Serious: Yes (Hospitalization)
  Sender: FDA-Public Use
  Company Number: None

PATIENT
  Age: 78 Year
  Sex: Male
  Weight: 80.5 kg

DRUGS (1)
  1. CEPHALEXIN. [Suspect]
     Active Substance: CEPHALEXIN
     Indication: SKIN ULCER
     Route: 048
     Dates: start: 20170117, end: 20170120

REACTIONS (4)
  - Rash [None]
  - Urticaria [None]
  - Peripheral swelling [None]
  - Local swelling [None]

NARRATIVE: CASE EVENT DATE: 20170121
